FAERS Safety Report 6837257-3 (Version None)
Quarter: 2010Q3

REPORT INFORMATION
  Report Type: 
  Country: None (occurrence: None)
  Receive Date: 20100707
  Receipt Date: 20100624
  Transmission Date: 20110219
  Serious: Yes (Hospitalization, Other)
  Sender: FDA-Public Use
  Company Number: 2010AL002476

PATIENT
  Age: 48 Year
  Sex: Male

DRUGS (9)
  1. NIFEDIPINE [Suspect]
     Indication: PERIPHERAL COLDNESS
     Dosage: 5 MG; TID; PO
     Route: 048
     Dates: start: 20091210, end: 20100214
  2. WARFARIN SODIUM [Concomitant]
  3. PERINDOPRIL ERBUMINE [Concomitant]
  4. RANITIDINE [Concomitant]
  5. SERTRALINE HCL [Concomitant]
  6. FUROSEMIDE [Concomitant]
  7. MIRTAZAPINE [Concomitant]
  8. FLUTICASONE PROPIONATE [Concomitant]
  9. PREV MEDS [Concomitant]

REACTIONS (4)
  - INTERNATIONAL NORMALISED RATIO INCREASED [None]
  - PERIPHERAL COLDNESS [None]
  - POST PROCEDURAL HAEMORRHAGE [None]
  - TOOTH EXTRACTION [None]
